FAERS Safety Report 4806047-5 (Version None)
Quarter: 2005Q4

REPORT INFORMATION
  Report Type: 
  Country: None (occurrence: None)
  Receive Date: 20051019
  Receipt Date: 20051004
  Transmission Date: 20060501
  Serious: Yes (Other)
  Sender: FDA-Public Use
  Company Number: USA-2004-0016320

PATIENT
  Sex: Male
  Weight: 90.7 kg

DRUGS (5)
  1. OXYCONTIN [Suspect]
     Indication: BACK PAIN
     Dosage: 20 MG Q8H, ORAL
     Route: 048
  2. VIOXX [Concomitant]
  3. PAXIL [Concomitant]
  4. PERCOCET [Concomitant]
  5. OXYCODONE HCL [Concomitant]

REACTIONS (45)
  - ANAL FISTULA [None]
  - ANXIETY [None]
  - ARTHRALGIA [None]
  - ASTHENIA [None]
  - BACK PAIN [None]
  - BURNING SENSATION [None]
  - BUTTOCK PAIN [None]
  - CHEST PAIN [None]
  - CHILLS [None]
  - CONSTIPATION [None]
  - DELUSIONAL DISORDER, UNSPECIFIED TYPE [None]
  - DEPRESSION [None]
  - DIARRHOEA [None]
  - DILATATION VENTRICULAR [None]
  - DRUG DEPENDENCE [None]
  - DRUG WITHDRAWAL SYNDROME [None]
  - DYSPNOEA [None]
  - DYSPNOEA PAROXYSMAL NOCTURNAL [None]
  - DYSURIA [None]
  - ELECTROCARDIOGRAM CHANGE [None]
  - ELECTROCARDIOGRAM T WAVE INVERSION [None]
  - FATIGUE [None]
  - FLANK PAIN [None]
  - HAEMOPTYSIS [None]
  - HEADACHE [None]
  - HYPOAESTHESIA [None]
  - INADEQUATE ANALGESIA [None]
  - INFLUENZA [None]
  - INSOMNIA [None]
  - LUNG NEOPLASM [None]
  - MUSCLE SPASMS [None]
  - MYOCARDIAL ISCHAEMIA [None]
  - NAUSEA [None]
  - OBSESSIVE-COMPULSIVE DISORDER [None]
  - PAIN [None]
  - PAIN IN EXTREMITY [None]
  - PARAESTHESIA [None]
  - PARANOIA [None]
  - PYREXIA [None]
  - RECTAL HAEMORRHAGE [None]
  - SINUSITIS [None]
  - SNORING [None]
  - VENTRICULAR DYSFUNCTION [None]
  - VENTRICULAR HYPOKINESIA [None]
  - VOMITING [None]
